FAERS Safety Report 16441358 (Version 1)
Quarter: 2019Q3

REPORT INFORMATION
  Report Type: Spontaneous
  Country: US (occurrence: US)
  Receive Date: 20190617
  Receipt Date: 20190617
  Transmission Date: 20191004
  Serious: Yes (Death)
  Sender: FDA-Public Use
  Company Number: None

PATIENT
  Age: 67 Year
  Sex: Female

DRUGS (8)
  1. ENBREL [Suspect]
     Active Substance: ETANERCEPT
     Indication: RHEUMATOID ARTHRITIS
     Dosage: ?          OTHER FREQUENCY:WEEKLY;?
     Route: 058
     Dates: start: 20190222, end: 20190614
  2. HYDROCO/APAP TAB 5-325 MG [Concomitant]
  3. ONDANSETRON TAB 4 MG [Concomitant]
  4. PROLIA SOL 60 MG / ML [Concomitant]
  5. PANTOPRAZOLE TAB 40 MG [Concomitant]
  6. AMOXICILLIN TAB 875 MG [Concomitant]
  7. MIRTAZIPINE TAB 15 MG [Concomitant]
  8. AMLODIPINE TAB 100 MG [Concomitant]

REACTIONS (1)
  - Death [None]
